FAERS Safety Report 5358219-1 (Version None)
Quarter: 2007Q2

REPORT INFORMATION
  Report Type: 
  Country: None (occurrence: None)
  Receive Date: 20070530
  Receipt Date: 20070205
  Transmission Date: 20071010
  Serious: Yes (Hospitalization, Other)
  Sender: FDA-Public Use
  Company Number: US200603004621

PATIENT
  Age: 54 Year
  Sex: Female
  Weight: 80.7 kg

DRUGS (1)
  1. ZYPREXA [Suspect]
     Indication: SCHIZOPHRENIA
     Dosage: 30 MG
     Dates: start: 19980101, end: 20060101

REACTIONS (4)
  - COMPLETED SUICIDE [None]
  - DIABETES MELLITUS [None]
  - SUICIDE ATTEMPT [None]
  - WEIGHT INCREASED [None]
